FAERS Safety Report 5599613-3 (Version None)
Quarter: 2008Q1

REPORT INFORMATION
  Report Type: 
  Country: None (occurrence: None)
  Receive Date: 20080117
  Receipt Date: 20080102
  Transmission Date: 20080703
  Serious: Yes (Hospitalization)
  Sender: FDA-Public Use
  Company Number: 2008S1000070

PATIENT
  Age: 53 Year
  Sex: Female

DRUGS (6)
  1. ONDANSETRON HCL [Suspect]
     Indication: PROPHYLAXIS OF NAUSEA AND VOMITING
     Dosage: 4 MG; INTRAVENOUS
     Route: 042
     Dates: start: 20071204
  2. CEFUROXIME [Concomitant]
  3. DEXAMETHASONE TAB [Concomitant]
  4. METRONIDAZOLE [Concomitant]
  5. MORPHINE [Concomitant]
  6. TRAMADOL HCL [Concomitant]

REACTIONS (2)
  - DYSTONIA [None]
  - TREMOR [None]
